FAERS Safety Report 16339101 (Version 1)
Quarter: 2019Q2

REPORT INFORMATION
  Report Type: Spontaneous
  Country: ES (occurrence: ES)
  Receive Date: 20190521
  Receipt Date: 20190521
  Transmission Date: 20190711
  Serious: Yes (Life-Threatening, Hospitalization)
  Sender: FDA-Public Use
  Company Number: ES-PFIZER INC-2019209217

PATIENT
  Age: 57 Year
  Sex: Female

DRUGS (1)
  1. METOTREXATO WYETH [Suspect]
     Active Substance: METHOTREXATE SODIUM
     Indication: RHEUMATOID ARTHRITIS
     Dosage: FIRST WEEK: 5 MG, SECOND WEEK: 7,5 MG, THIRD WEEK: 10 MG, FOURTH WEEK: 12,5 MG, FIFTH WEEK: 15 MG
     Route: 048
     Dates: start: 20190405

REACTIONS (3)
  - Medication error [Recovering/Resolving]
  - Stomatitis [Recovering/Resolving]
  - Bone marrow failure [Recovering/Resolving]

NARRATIVE: CASE EVENT DATE: 20190418
